FAERS Safety Report 11096477 (Version 1)
Quarter: 2015Q2

REPORT INFORMATION
  Report Type: Spontaneous
  Country: US (occurrence: None)
  Receive Date: 20150506
  Receipt Date: 20150506
  Transmission Date: 20150821
  Serious: Yes (Death)
  Sender: FDA-Public Use
  Company Number: None

PATIENT
  Age: 31 Year
  Sex: Female
  Weight: 95.26 kg

DRUGS (2)
  1. CLOZAPINE. [Suspect]
     Active Substance: CLOZAPINE
     Indication: OFF LABEL USE
     Dosage: 21 FOR 7 DAY SUPPLY ?THREE TIMES DAILY?TAKEN BY MOUTH
     Route: 048
     Dates: start: 20140314, end: 20140516
  2. CLOZAPINE. [Suspect]
     Active Substance: CLOZAPINE
     Indication: BIPOLAR DISORDER
     Dosage: 21 FOR 7 DAY SUPPLY ?THREE TIMES DAILY?TAKEN BY MOUTH
     Route: 048
     Dates: start: 20140314, end: 20140516

REACTIONS (5)
  - Sepsis [None]
  - Pain [None]
  - Adhesion [None]
  - Cardiac failure [None]
  - Overdose [None]

NARRATIVE: CASE EVENT DATE: 20140519
